FAERS Safety Report 7425946-1 (Version None)
Quarter: 2011Q2

REPORT INFORMATION
  Report Type: 
  Country: None (occurrence: None)
  Receive Date: 20110420
  Receipt Date: 20081107
  Transmission Date: 20111010
  Serious: Yes (Other)
  Sender: FDA-Public Use
  Company Number: US-BAYER-200837454NA

PATIENT
  Age: 56 Year
  Sex: Male
  Weight: 90.703 kg

DRUGS (13)
  1. TOPROL-XL [Concomitant]
     Dosage: 50 MG, UNK
  2. VIAGRA [Concomitant]
     Dosage: UNK
     Dates: start: 20010101
  3. LEVOPHED [Concomitant]
     Dosage: UNK
     Route: 042
     Dates: start: 20070112
  4. TRASYLOL [Suspect]
     Indication: CORONARY ARTERY BYPASS
     Dosage: 1 ML, INITIAL DOSE
     Route: 042
     Dates: start: 20070112
  5. TRASYLOL [Suspect]
     Dosage: 200 ML, LOADING DOSE
     Route: 042
  6. HEPARIN [Concomitant]
     Dosage: 25000 U, UNK
     Route: 042
     Dates: start: 20070112
  7. ACETYLSALICYLIC ACID SRT [Concomitant]
  8. PLAVIX [Concomitant]
     Dosage: 75 MG, UNK
  9. MANNITOL [Concomitant]
     Dosage: 45 MG CARDIOPULMONARY BYPASS
     Dates: start: 20070112
  10. TRASYLOL [Suspect]
     Dosage: 50 ML/HR INFUSION RATE
     Route: 042
     Dates: end: 20070112
  11. IBUPROFEN [Concomitant]
     Dosage: UNK UNK, PRN
  12. ESMOLOL [Concomitant]
     Dosage: 200 MG, UNK
     Route: 042
     Dates: start: 20070112
  13. VANCOMYCIN [Concomitant]
     Dosage: UNK
     Route: 042
     Dates: start: 20070112

REACTIONS (9)
  - ANXIETY [None]
  - PAIN [None]
  - STRESS [None]
  - EMOTIONAL DISTRESS [None]
  - INJURY [None]
  - RENAL FAILURE [None]
  - UNEVALUABLE EVENT [None]
  - FEAR [None]
  - ANHEDONIA [None]
